FAERS Safety Report 7605036-5 (Version None)
Quarter: 2011Q3

REPORT INFORMATION
  Report Type: 
  Country: None (occurrence: None)
  Receive Date: 20110713
  Receipt Date: 20070613
  Transmission Date: 20111222
  Serious: Yes (Other)
  Sender: FDA-Public Use
  Company Number: 2007BI012885

PATIENT
  Age: 40 Year
  Sex: Female

DRUGS (7)
  1. TYSABRI [Suspect]
     Route: 042
     Dates: start: 20070418, end: 20070418
  2. IMITREX [Concomitant]
  3. ALBUTEROL [Concomitant]
  4. BENADRYL [Concomitant]
  5. EPIPEN [Concomitant]
  6. ZYRTEC [Concomitant]
  7. TYSABRI [Suspect]
     Indication: MULTIPLE SCLEROSIS
     Route: 042
     Dates: start: 20050117

REACTIONS (7)
  - UHTHOFF'S PHENOMENON [None]
  - HYPERSENSITIVITY [None]
  - IMMUNE SYSTEM DISORDER [None]
  - COGNITIVE DISORDER [None]
  - TOOTH INFECTION [None]
  - CENTRAL NERVOUS SYSTEM LESION [None]
  - GASTROOESOPHAGEAL REFLUX DISEASE [None]
